FAERS Safety Report 14849835 (Version 7)
Quarter: 2019Q2

REPORT INFORMATION
  Report Type: Report from Study
  Country: US (occurrence: US)
  Receive Date: 20180504
  Receipt Date: 20190401
  Transmission Date: 20190711
  Serious: Yes (Death, Hospitalization, Other)
  Sender: FDA-Public Use
  Company Number: US-ACTELION-A-US2018-171256

PATIENT
  Age: 72 Year
  Sex: Female
  Weight: 63.49 kg

DRUGS (2)
  1. ADCIRCA [Concomitant]
     Active Substance: TADALAFIL
  2. OPSUMIT [Suspect]
     Active Substance: MACITENTAN
     Indication: PULMONARY ARTERIAL HYPERTENSION
     Dosage: 10 MG, QD
     Route: 048
     Dates: start: 20170227, end: 20190102

REACTIONS (19)
  - Hepatic cancer [Fatal]
  - Adenocarcinoma [Fatal]
  - Oedema peripheral [Recovered/Resolved]
  - Abdominal pain [Fatal]
  - Mental status changes [Recovered/Resolved with Sequelae]
  - Condition aggravated [Unknown]
  - Blood pressure systolic decreased [Fatal]
  - Dyspnoea exertional [Not Recovered/Not Resolved]
  - Hepatic mass [Fatal]
  - Hypoglycaemia [Fatal]
  - Fall [Unknown]
  - Aspartate aminotransferase increased [Unknown]
  - Cardiac failure congestive [Recovered/Resolved]
  - Dyspnoea [Recovered/Resolved]
  - Joint injury [Unknown]
  - Blood bilirubin increased [Unknown]
  - Therapeutic response decreased [Unknown]
  - Encephalopathy [Unknown]
  - Pulmonary hypertension [Unknown]

NARRATIVE: CASE EVENT DATE: 20170426
